FAERS Safety Report 11158144 (Version 1)
Quarter: 2015Q2

REPORT INFORMATION
  Report Type: Spontaneous
  Country: BR (occurrence: BR)
  Receive Date: 20150603
  Receipt Date: 20150603
  Transmission Date: 20150821
  Serious: Yes (Other)
  Sender: FDA-Public Use
  Company Number: BR-ROCHE-1583140

PATIENT
  Age: 60 Year

DRUGS (6)
  1. HERCEPTIN [Suspect]
     Active Substance: TRASTUZUMAB
     Indication: METASTASES TO LYMPH NODES
     Route: 065
     Dates: start: 2012
  2. DOCETAXEL. [Suspect]
     Active Substance: DOCETAXEL
     Indication: METASTASES TO LYMPH NODES
     Route: 065
     Dates: start: 2012
  3. DOXORUBICIN [Suspect]
     Active Substance: DOXORUBICIN
     Indication: ADJUVANT THERAPY
     Route: 065
     Dates: start: 2012
  4. HERCEPTIN [Suspect]
     Active Substance: TRASTUZUMAB
     Route: 065
     Dates: start: 2015
  5. CYCLOPHOSPHAMIDE. [Suspect]
     Active Substance: CYCLOPHOSPHAMIDE
     Indication: ADJUVANT THERAPY
     Route: 065
     Dates: start: 2012
  6. PERJETA [Suspect]
     Active Substance: PERTUZUMAB
     Indication: METASTASES TO LYMPH NODES
     Route: 065
     Dates: start: 2015

REACTIONS (2)
  - Tympanic membrane perforation [Not Recovered/Not Resolved]
  - Metastases to lymph nodes [Unknown]

NARRATIVE: CASE EVENT DATE: 201501
